FAERS Safety Report 5025837-X (Version None)
Quarter: 2006Q2

REPORT INFORMATION
  Report Type: 
  Country: None (occurrence: None)
  Receive Date: 20060608
  Receipt Date: 20060522
  Transmission Date: 20061013
  Serious: Yes (Hospitalization)
  Sender: FDA-Public Use
  Company Number: 225889

PATIENT
  Age: 51 Year
  Sex: Female

DRUGS (1)
  1. AVASTIN [Suspect]
     Indication: CERVIX CARCINOMA
     Dosage: 15 MG/KG, INTRAVENOUS
     Route: 042
     Dates: start: 20060309

REACTIONS (3)
  - ABDOMINAL PAIN [None]
  - DISEASE PROGRESSION [None]
  - HAEMOGLOBIN ABNORMAL [None]
